FAERS Safety Report 8473657-6 (Version None)
Quarter: 2012Q2

REPORT INFORMATION
  Report Type: 
  Country: None (occurrence: None)
  Receive Date: 20120628
  Receipt Date: 20110830
  Transmission Date: 20120825
  Serious: Yes (Death)
  Sender: FDA-Public Use
  Company Number: US-MYLANLABS-2011S1016451

PATIENT
  Age: 50 Year
  Sex: Female
  Weight: 115.67 kg

DRUGS (2)
  1. CLOZAPINE [Suspect]
     Dates: start: 20040101, end: 20110701
  2. CLOZAPINE [Suspect]
     Route: 048
     Dates: end: 20110701

REACTIONS (1)
  - MYOCARDIAL INFARCTION [None]
